FAERS Safety Report 6110195-X (Version None)
Quarter: 2009Q1

REPORT INFORMATION
  Report Type: 
  Country: None (occurrence: None)
  Receive Date: 20090309
  Receipt Date: 20090309
  Transmission Date: 20090719
  Serious: Yes (Life-Threatening, Hospitalization)
  Sender: FDA-Public Use
  Company Number: None

PATIENT
  Sex: Male
  Weight: 92 kg

DRUGS (18)
  1. SIROLIMUS [Suspect]
     Indication: IMMUNOSUPPRESSION
     Dosage: .25MG QD PO
     Route: 048
     Dates: start: 20051118, end: 20060317
  2. SIROLIMUS [Suspect]
     Indication: LUNG TRANSPLANT
     Dosage: .25MG QD PO
     Route: 048
     Dates: start: 20051118, end: 20060317
  3. PROGRAF [Concomitant]
  4. PREDNISONE [Concomitant]
  5. BACTRIM [Concomitant]
  6. VORICONAZOLE [Concomitant]
  7. ASPIRIN [Concomitant]
  8. M.V.I. [Concomitant]
  9. CALCIUM CARBONATE [Concomitant]
  10. MG OXIDE [Concomitant]
  11. NOVOLOG [Concomitant]
  12. RAMIPRIL [Concomitant]
  13. SIMVASTATIN [Concomitant]
  14. PREVACID [Concomitant]
  15. FOSAMAX [Concomitant]
  16. LANTUS [Concomitant]
  17. ALTACE [Concomitant]
  18. LASIX [Concomitant]

REACTIONS (2)
  - OEDEMA PERIPHERAL [None]
  - PULMONARY EMBOLISM [None]
